FAERS Safety Report 8572522-3 (Version None)
Quarter: 2012Q3

REPORT INFORMATION
  Report Type: 
  Country: None (occurrence: None)
  Receive Date: 20120806
  Receipt Date: 20120802
  Transmission Date: 20120928
  Serious: Yes (Life-Threatening)
  Sender: FDA-Public Use
  Company Number: AT-ASTRAZENECA-2012SE54739

PATIENT
  Age: 72 Year
  Sex: Male
  Weight: 124 kg

DRUGS (9)
  1. DIPIDOLOR [Concomitant]
     Route: 042
     Dates: start: 20120717, end: 20120720
  2. RELISTOR [Concomitant]
     Route: 058
  3. MEROPENEM [Suspect]
     Indication: PANCREATITIS
     Route: 042
     Dates: start: 20120718, end: 20120724
  4. LOVENOX [Concomitant]
     Dosage: 1 DF SC EVERY 24 H
     Route: 058
     Dates: start: 20120717, end: 20120723
  5. NOVALGIN [Suspect]
     Indication: PAIN
     Route: 042
     Dates: start: 20120717, end: 20120719
  6. ARMODAFINIL [Concomitant]
     Route: 042
     Dates: start: 20120724, end: 20120725
  7. PANTOPRAZOLE SODIUM [Suspect]
     Indication: ULCER
     Route: 042
     Dates: start: 20120417, end: 20120425
  8. ACTRAPID [Concomitant]
     Dates: start: 20120717
  9. RATIOGRASTIM [Concomitant]
     Dosage: 48 MIO IE, 1 DF DAILY
     Dates: start: 20120720

REACTIONS (2)
  - THROMBOCYTOPENIA [None]
  - AGRANULOCYTOSIS [None]
